FAERS Safety Report 17718786 (Version 3)
Quarter: 2020Q3

REPORT INFORMATION
  Report Type: Report from Study
  Country: CA (occurrence: CA)
  Receive Date: 20200428
  Receipt Date: 20200710
  Transmission Date: 20201102
  Serious: Yes (Hospitalization)
  Sender: FDA-Public Use
  Company Number: CA-JNJFOC-20200430096

PATIENT
  Age: 12 Year
  Sex: Male
  Weight: 63.1 kg

DRUGS (2)
  1. 5?ASA [Concomitant]
     Active Substance: MESALAMINE
     Route: 048
  2. INFLIXIMAB, RECOMBINANT [Suspect]
     Active Substance: INFLIXIMAB
     Indication: INFLAMMATORY BOWEL DISEASE
     Route: 042
     Dates: start: 20130905, end: 20190116

REACTIONS (1)
  - Osteomyelitis [Recovered/Resolved]

NARRATIVE: CASE EVENT DATE: 20190306
